FAERS Safety Report 15117749 (Version 3)
Quarter: 2018Q3

REPORT INFORMATION
  Report Type: Report from Study
  Country: US (occurrence: US)
  Receive Date: 20180706
  Receipt Date: 20180803
  Transmission Date: 20181010
  Serious: Yes (Hospitalization)
  Sender: FDA-Public Use
  Company Number: US-ACTELION-A-US2015-118422

PATIENT
  Age: 53 Year
  Sex: Female
  Weight: 49.43 kg

DRUGS (5)
  1. SILDENAFIL. [Concomitant]
     Active Substance: SILDENAFIL
  2. VELETRI [Suspect]
     Active Substance: EPOPROSTENOL
     Dosage: 19 NG/KG, PER MIN
     Route: 042
  3. VELETRI [Suspect]
     Active Substance: EPOPROSTENOL
     Dosage: 21 NG/KG, PER MIN
     Route: 042
  4. ADCIRCA [Concomitant]
     Active Substance: TADALAFIL
  5. VELETRI [Suspect]
     Active Substance: EPOPROSTENOL
     Indication: PULMONARY HYPERTENSION
     Dosage: 11 NG/KG, PER MIN
     Route: 042
     Dates: start: 20150504

REACTIONS (28)
  - Flushing [Unknown]
  - Pneumonia [Unknown]
  - Diarrhoea [Recovered/Resolved]
  - Nausea [Unknown]
  - Decreased activity [Unknown]
  - Dizziness [Unknown]
  - Decreased appetite [Unknown]
  - Syncope [Recovering/Resolving]
  - Influenza [Recovering/Resolving]
  - Cough [Recovering/Resolving]
  - Oxygen saturation decreased [Unknown]
  - Feeling abnormal [Recovered/Resolved]
  - Dyspnoea exertional [Unknown]
  - Abdominal pain upper [Unknown]
  - Anxiety [Unknown]
  - Temperature intolerance [Unknown]
  - Pulmonary arterial pressure abnormal [Unknown]
  - Headache [Recovered/Resolved]
  - Night sweats [Unknown]
  - Bronchitis [Recovering/Resolving]
  - Dehydration [Recovering/Resolving]
  - Pain in jaw [Unknown]
  - Weight decreased [Unknown]
  - Condition aggravated [Unknown]
  - Pleural effusion [Unknown]
  - Catheter site pruritus [Unknown]
  - Fatigue [Unknown]
  - Catheter site erythema [Unknown]
